FAERS Safety Report 7952616-3 (Version None)
Quarter: 2011Q4

REPORT INFORMATION
  Report Type: 
  Country: None (occurrence: None)
  Receive Date: 20111201
  Receipt Date: 20111121
  Transmission Date: 20120403
  Serious: Yes (Hospitalization)
  Sender: FDA-Public Use
  Company Number: TR-JNJFOC-20100902914

PATIENT
  Age: 46 Year
  Sex: Female
  Weight: 78 kg

DRUGS (2)
  1. GOLIMUMAB [Suspect]
     Indication: RHEUMATOID ARTHRITIS
     Route: 058
     Dates: start: 20100608, end: 20100819
  2. AMLODIPINE [Concomitant]
     Indication: HYPERTENSION
     Dates: start: 20100813

REACTIONS (2)
  - DIABETES MELLITUS [None]
  - HEMIPARESIS [None]
